FAERS Safety Report 19020206 (Version 4)
Quarter: 2023Q4

REPORT INFORMATION
  Report Type: Spontaneous
  Country: US (occurrence: US)
  Receive Date: 20210317
  Receipt Date: 20231218
  Transmission Date: 20240110
  Serious: No
  Sender: FDA-Public Use
  Company Number: US-PFIZER INC-2021210906

PATIENT
  Age: 62 Year
  Sex: Female

DRUGS (2)
  1. BOSULIF [Suspect]
     Active Substance: BOSUTINIB MONOHYDRATE
     Dosage: 100 MG
  2. BOSULIF [Suspect]
     Active Substance: BOSUTINIB MONOHYDRATE
     Dosage: 300 MG, DAILY (3 TABLET ORALLY EVERY DAY. SWALLOW WHOLE; DO NOT BREAK TABLET. TAKE WITH FOOD)
     Route: 048

REACTIONS (1)
  - Nervousness [Unknown]
